FAERS Safety Report 6250236-2 (Version None)
Quarter: 2009Q2

REPORT INFORMATION
  Report Type: 
  Country: None (occurrence: None)
  Receive Date: 20090630
  Receipt Date: 20090618
  Transmission Date: 20091009
  Serious: Yes (Hospitalization)
  Sender: FDA-Public Use
  Company Number: GB-RANBAXY-2005RR-01258

PATIENT
  Age: 7 Year
  Sex: Female

DRUGS (4)
  1. IBUPROFEN [Suspect]
     Indication: COUGH
     Dosage: 100 MG, UNK
     Route: 065
  2. IBUPROFEN [Suspect]
     Indication: PYREXIA
  3. FLOXACILLIN SODIUM [Suspect]
     Indication: COUGH
     Route: 065
  4. FLOXACILLIN SODIUM [Suspect]
     Indication: PYREXIA

REACTIONS (6)
  - ANURIA [None]
  - DEHYDRATION [None]
  - MALAISE [None]
  - RENAL CORTICAL NECROSIS [None]
  - RENAL FAILURE CHRONIC [None]
  - VOMITING [None]
